FAERS Safety Report 13060680 (Version 2)
Quarter: 2016Q4

REPORT INFORMATION
  Report Type: Spontaneous
  Country: CN (occurrence: CN)
  Receive Date: 20161225
  Receipt Date: 20161230
  Transmission Date: 20170207
  Serious: Yes (Hospitalization, Other)
  Sender: FDA-Public Use
  Company Number: CN-ASTRAZENECA-2016SF24455

PATIENT
  Age: 69 Year
  Sex: Male

DRUGS (11)
  1. CONCOR [Concomitant]
     Active Substance: BISOPROLOL FUMARATE
     Route: 048
  2. WENXIN [Concomitant]
     Indication: ARRHYTHMIA
  3. LOTENSIN [Concomitant]
     Active Substance: BENAZEPRIL HYDROCHLORIDE
  4. PLENDIL [Suspect]
     Active Substance: FELODIPINE
     Route: 048
  5. NORVASC [Concomitant]
     Active Substance: AMLODIPINE BESYLATE
     Dosage: 1/2 TAB IN THE MORNING AND 1/2 TAB IN THE EVENING
     Route: 048
  6. BETALOC [Suspect]
     Active Substance: METOPROLOL TARTRATE
     Route: 048
  7. BETALOC ZOK [Suspect]
     Active Substance: METOPROLOL SUCCINATE
     Indication: ARRHYTHMIA
     Route: 048
     Dates: start: 201508
  8. PLENDIL [Suspect]
     Active Substance: FELODIPINE
     Route: 048
  9. BETALOC [Suspect]
     Active Substance: METOPROLOL TARTRATE
     Route: 048
  10. FORTEO [Concomitant]
     Active Substance: TERIPARATIDE
  11. BETALOC ZOK [Suspect]
     Active Substance: METOPROLOL SUCCINATE
     Indication: ARRHYTHMIA
     Route: 048
     Dates: start: 201508

REACTIONS (9)
  - Supraventricular extrasystoles [Unknown]
  - Tachycardia [Unknown]
  - Blood pressure inadequately controlled [Not Recovered/Not Resolved]
  - Heart rate increased [Unknown]
  - Arrhythmia [Recovered/Resolved]
  - Bradycardia [Unknown]
  - Cardiac arrest [Unknown]
  - Atrial fibrillation [Recovered/Resolved]
  - Cardiac discomfort [Unknown]

NARRATIVE: CASE EVENT DATE: 20160903
